FAERS Safety Report 8816658 (Version 1)
Quarter: 2012Q4

REPORT INFORMATION
  Report Type: Spontaneous
  Country: KR (occurrence: None)
  Receive Date: 20120928
  Receipt Date: 20120928
  Transmission Date: 20130627
  Serious: Yes (Hospitalization, Other)
  Sender: FDA-Public Use
  Company Number: 1423135

PATIENT
  Age: 13 Year
  Sex: Male

DRUGS (4)
  1. VINCRISTINE SULFATE [Suspect]
     Indication: EWING^S SARCOMA
  2. IFOSFAMIDE [Suspect]
     Indication: EWING^S SARCOMA
  3. DOXORUBICIN [Suspect]
     Indication: EWING^S SARCOMA
  4. ETOPOSIDE [Concomitant]
     Indication: EWING^S SARCOMA

REACTIONS (5)
  - Febrile neutropenia [None]
  - Candidiasis [None]
  - Urinary tract infection fungal [None]
  - Arthritis fungal [None]
  - Pancytopenia [None]
